FAERS Safety Report 9746455 (Version 1)
Quarter: 2013Q4

REPORT INFORMATION
  Report Type: Spontaneous
  Country: US (occurrence: None)
  Receive Date: 20131209
  Receipt Date: 20131209
  Transmission Date: 20140711
  Serious: Yes (Disabling)
  Sender: FDA-Public Use
  Company Number: None

PATIENT
  Age: 58 Year
  Sex: Male
  Weight: 86.18 kg

DRUGS (2)
  1. GABAPENTIN [Suspect]
     Indication: PAIN
     Route: 048
  2. TRAMADOL [Suspect]
     Indication: PAIN
     Route: 048

REACTIONS (19)
  - Product substitution issue [None]
  - Drug effect decreased [None]
  - Anxiety [None]
  - Paranoia [None]
  - Hallucination [None]
  - Blood cortisol increased [None]
  - Abdominal pain [None]
  - Feeling of body temperature change [None]
  - Back pain [None]
  - Diarrhoea [None]
  - Nausea [None]
  - Vomiting [None]
  - Pollakiuria [None]
  - Chromaturia [None]
  - Skin discolouration [None]
  - Mydriasis [None]
  - Heart rate increased [None]
  - Feeling abnormal [None]
  - Drug withdrawal syndrome [None]
